FAERS Safety Report 9728200 (Version 1)
Quarter: 2013Q4

REPORT INFORMATION
  Report Type: Spontaneous
  Country: US (occurrence: None)
  Receive Date: 20131202
  Receipt Date: 20131202
  Transmission Date: 20140711
  Serious: Yes (Other)
  Sender: FDA-Public Use
  Company Number: SYM-2013-13400

PATIENT
  Age: 64 Year
  Sex: Female

DRUGS (1)
  1. XENAZINE (TETRABENAZINE) (TABLET) (TETRABENAZINE) [Suspect]
     Indication: HUNTINGTON^S DISEASE
     Dosage: 25 MG, 2 IN 1 D, VIA PEG TUBE
     Route: 048

REACTIONS (4)
  - Fall [None]
  - Head injury [None]
  - Wound infection [None]
  - Wound abscess [None]
